FAERS Safety Report 8478658 (Version 5)
Quarter: 2012Q4

REPORT INFORMATION
  Report Type: Report from Study
  Country: CA (occurrence: CA)
  Receive Date: 20120327
  Receipt Date: 20121008
  Transmission Date: 20130627
  Serious: Yes (Other)
  Sender: FDA-Public Use
  Company Number: CA-ROCHE-1049347

PATIENT
  Age: 35 Year
  Sex: Female
  Weight: 52.66 kg

DRUGS (13)
  1. AVASTIN [Suspect]
     Route: 042
     Dates: start: 20120802
  2. XELODA [Suspect]
     Indication: PRODUCT USED FOR UNKNOWN INDICATION
     Route: 048
  3. DIPHENHYDRAMINE HCL [Concomitant]
     Indication: PREMEDICATION
     Route: 048
     Dates: start: 20120216, end: 20120216
  4. DIPHENHYDRAMINE HCL [Concomitant]
     Route: 048
     Dates: start: 20120823, end: 20120823
  5. DIPHENHYDRAMINE HCL [Concomitant]
     Route: 048
     Dates: start: 20120920, end: 20120920
  6. ACETAMINOPHEN [Concomitant]
     Indication: PREMEDICATION
     Route: 048
     Dates: start: 20120216, end: 20120216
  7. ACETAMINOPHEN [Concomitant]
     Route: 048
     Dates: start: 20120823, end: 20120823
  8. ACETAMINOPHEN [Concomitant]
     Route: 048
     Dates: start: 20120920, end: 20120920
  9. METHYLPREDNISOLONE [Concomitant]
     Indication: PREMEDICATION
     Route: 042
     Dates: start: 20120216, end: 20120216
  10. GRAVOL [Concomitant]
  11. AVASTIN [Suspect]
     Indication: BREAST CANCER METASTATIC
     Route: 042
     Dates: start: 20111027
  12. AVASTIN [Suspect]
     Route: 042
     Dates: start: 20111122
  13. AVASTIN [Suspect]
     Route: 042
     Dates: start: 20111215

REACTIONS (7)
  - Arteriospasm coronary [Not Recovered/Not Resolved]
  - White blood cell count decreased [Unknown]
  - Red cell distribution width increased [Unknown]
  - Neutrophil count decreased [Unknown]
  - Gamma-glutamyltransferase increased [Unknown]
  - Platelet count decreased [Unknown]
  - Hepatic neoplasm [Not Recovered/Not Resolved]
